FAERS Safety Report 25647820 (Version 1)
Quarter: 2025Q3

REPORT INFORMATION
  Report Type: Report from Study
  Country: GB (occurrence: GB)
  Receive Date: 20250806
  Receipt Date: 20250806
  Transmission Date: 20251020
  Serious: Yes (Hospitalization)
  Sender: SAMSUNG BIOEPIS
  Company Number: GB-SAMSUNG BIOEPIS-SB-2025-23819

PATIENT
  Age: 81 Year
  Sex: Female

DRUGS (1)
  1. IMRALDI [Suspect]
     Active Substance: ADALIMUMAB
     Indication: Psoriatic arthropathy
     Dosage: 40 MG/0.4ML (HIGH C.)
     Route: 058

REACTIONS (5)
  - Myocardial infarction [Unknown]
  - Chest discomfort [Unknown]
  - Headache [Unknown]
  - Malaise [Unknown]
  - Confusional state [Unknown]
